FAERS Safety Report 17356529 (Version 2)
Quarter: 2020Q2

REPORT INFORMATION
  Report Type: Spontaneous
  Country: DE (occurrence: DE)
  Receive Date: 20200131
  Receipt Date: 20200522
  Transmission Date: 20200713
  Serious: Yes (Hospitalization)
  Sender: FDA-Public Use
  Company Number: DE-MYLANLABS-2020M1010700

PATIENT
  Age: 59 Year
  Sex: Male

DRUGS (21)
  1. PROMETHAZINE [Suspect]
     Active Substance: PROMETHAZINE HYDROCHLORIDE
     Indication: RESTLESSNESS
  2. RISPERIDONE. [Suspect]
     Active Substance: RISPERIDONE
     Indication: MAJOR DEPRESSION
     Dosage: 1 MILLIGRAM, QD
     Route: 065
     Dates: start: 20190318, end: 20190416
  3. RISPERIDONE. [Suspect]
     Active Substance: RISPERIDONE
     Indication: SLEEP DISORDER
     Dosage: 1 MILLIGRAM
     Route: 065
     Dates: start: 20190424, end: 20190426
  4. PROMETHAZINE [Suspect]
     Active Substance: PROMETHAZINE HYDROCHLORIDE
     Indication: MAJOR DEPRESSION
     Dosage: 25 MILLIGRAM, QD
     Route: 065
     Dates: start: 20190403, end: 20190414
  5. BISOPROLOL [Concomitant]
     Active Substance: BISOPROLOL
     Dosage: SEIT MONATEN
  6. SERTRALINE [Suspect]
     Active Substance: SERTRALINE HYDROCHLORIDE
     Indication: SLEEP DISORDER
     Dosage: 100 MILLIGRAM, QD
     Route: 065
     Dates: start: 20190403, end: 20190415
  7. ZOPICLONE [Suspect]
     Active Substance: ZOPICLONE
     Indication: DEPRESSIVE SYMPTOM
  8. TRAZODONE [Suspect]
     Active Substance: TRAZODONE HYDROCHLORIDE
     Indication: RESTLESSNESS
     Dosage: 100 MILLIGRAM, QD
     Route: 065
     Dates: start: 20190402, end: 20190414
  9. PROMETHAZINE [Suspect]
     Active Substance: PROMETHAZINE HYDROCHLORIDE
     Indication: SLEEP DISORDER
     Dosage: 150 MILLIGRAM
     Route: 065
     Dates: start: 20190423, end: 20190426
  10. TRAZODONE [Suspect]
     Active Substance: TRAZODONE HYDROCHLORIDE
     Indication: SLEEP DISORDER
     Dosage: UNK
     Route: 065
     Dates: start: 20190424, end: 20190426
  11. PROMETHAZINE [Suspect]
     Active Substance: PROMETHAZINE HYDROCHLORIDE
     Indication: DEPRESSIVE SYMPTOM
     Dosage: 50 MILLIGRAM, QD
     Route: 065
     Dates: start: 20190415, end: 20190422
  12. PANTOPRAZOLE [Concomitant]
     Active Substance: PANTOPRAZOLE
     Dosage: SEIT MONATEN 20
  13. SERTRALINE [Suspect]
     Active Substance: SERTRALINE HYDROCHLORIDE
     Indication: MAJOR DEPRESSION
     Dosage: 125 MILLIGRAM
     Route: 065
     Dates: end: 20190402
  14. RISPERIDONE. [Suspect]
     Active Substance: RISPERIDONE
     Indication: RESTLESSNESS
     Dosage: 2 MILLIGRAM, QD
     Route: 065
     Dates: start: 20190417, end: 20190423
  15. ZOPICLONE [Suspect]
     Active Substance: ZOPICLONE
     Indication: RESTLESSNESS
     Dosage: 3.75 MILLIGRAM
     Route: 065
     Dates: start: 20190401, end: 20190426
  16. ZOPICLONE [Suspect]
     Active Substance: ZOPICLONE
     Indication: SLEEP DISORDER
  17. SERTRALINE [Suspect]
     Active Substance: SERTRALINE HYDROCHLORIDE
     Indication: RESTLESSNESS
     Dosage: 150 MILLIGRAM, QD
     Route: 065
     Dates: start: 20190416, end: 20190426
  18. SERTRALINE [Suspect]
     Active Substance: SERTRALINE HYDROCHLORIDE
     Indication: DEPRESSIVE SYMPTOM
  19. ZOPICLONE [Suspect]
     Active Substance: ZOPICLONE
     Indication: MAJOR DEPRESSION
     Dosage: 7.5 MILLIGRAM
     Route: 065
     Dates: start: 20190318, end: 20190331
  20. TRAZODONE [Suspect]
     Active Substance: TRAZODONE HYDROCHLORIDE
     Indication: MAJOR DEPRESSION
     Dosage: 25-100 MG
     Route: 065
     Dates: start: 20190321, end: 20190401
  21. TRAZODONE [Suspect]
     Active Substance: TRAZODONE HYDROCHLORIDE
     Dosage: 125 MILLIGRAM, QD
     Route: 065
     Dates: start: 20190415, end: 20190423

REACTIONS (5)
  - General symptom [Recovered/Resolved]
  - Obsessive thoughts [Recovered/Resolved]
  - Akathisia [Recovered/Resolved]
  - Nonspecific reaction [Recovered/Resolved]
  - Psychomotor hyperactivity [Recovered/Resolved]

NARRATIVE: CASE EVENT DATE: 20190418
